FAERS Safety Report 9492000 (Version 1)
Quarter: 2013Q3

REPORT INFORMATION
  Report Type: Spontaneous
  Country: US (occurrence: US)
  Receive Date: 20130830
  Receipt Date: 20130830
  Transmission Date: 20140515
  Serious: No
  Sender: FDA-Public Use
  Company Number: US-009507513-1308USA012291

PATIENT
  Age: 50 Year
  Sex: Male

DRUGS (2)
  1. ISENTRESS [Suspect]
     Dosage: ONCE A DAY
     Route: 048
  2. EPZICOM [Concomitant]
     Dosage: TWICE A DAY

REACTIONS (2)
  - Underdose [Unknown]
  - Inappropriate schedule of drug administration [Unknown]
